FAERS Safety Report 20664593 (Version 1)
Quarter: 2022Q2

REPORT INFORMATION
  Report Type: Spontaneous
  Country: CN (occurrence: CN)
  Receive Date: 20220401
  Receipt Date: 20220401
  Transmission Date: 20220720
  Serious: Yes (Hospitalization)
  Sender: FDA-Public Use
  Company Number: CN-PFIZER INC-202200463542

PATIENT
  Age: 84 Year
  Sex: Female

DRUGS (3)
  1. CELECOXIB [Suspect]
     Active Substance: CELECOXIB
     Indication: Post herpetic neuralgia
     Dosage: 0.2 G, 1X/DAY
     Route: 048
     Dates: start: 20220303, end: 20220312
  2. PREGABALIN [Concomitant]
     Active Substance: PREGABALIN
     Indication: Post herpetic neuralgia
     Dosage: 75 MG, 2X/DAY
     Route: 048
     Dates: start: 20220303, end: 20220312
  3. METHYLCOBALAMIN [Concomitant]
     Active Substance: METHYLCOBALAMIN
     Indication: Post herpetic neuralgia
     Dosage: 500 UG, 3X/DAY
     Route: 048
     Dates: start: 20220303, end: 20220312

REACTIONS (1)
  - Venous thrombosis [Unknown]

NARRATIVE: CASE EVENT DATE: 20220307
